FAERS Safety Report 24895540 (Version 5)
Quarter: 2025Q3

REPORT INFORMATION
  Report Type: Report from Study
  Country: US (occurrence: US)
  Receive Date: 20250128
  Receipt Date: 20250917
  Transmission Date: 20251021
  Serious: Yes (Other)
  Sender: SUNOVION
  Company Number: US-SUMITOMO PHARMA SWITZERLAND GMBH-2025SPA000522

PATIENT
  Age: 76 Year
  Sex: Male

DRUGS (1)
  1. ORGOVYX [Suspect]
     Active Substance: RELUGOLIX
     Indication: Prostate cancer
     Dosage: 120 MG, QD
     Route: 048
     Dates: start: 20241225

REACTIONS (17)
  - Nephrolithiasis [Unknown]
  - Metastases to bone [Unknown]
  - Bronchitis [Unknown]
  - Cognitive disorder [Unknown]
  - Memory impairment [Unknown]
  - COVID-19 [Unknown]
  - Pollakiuria [Unknown]
  - Heart rate increased [Unknown]
  - Vomiting [Unknown]
  - Aphasia [Unknown]
  - Haemorrhage [Unknown]
  - Nausea [Unknown]
  - Blood glucose increased [Unknown]
  - Asthenia [Unknown]
  - Weight increased [Unknown]
  - Middle insomnia [Unknown]
  - Incorrect dose administered [Recovered/Resolved]
